FAERS Safety Report 7453976-2 (Version None)
Quarter: 2011Q2

REPORT INFORMATION
  Report Type: 
  Country: None (occurrence: None)
  Receive Date: 20110502
  Receipt Date: 20110214
  Transmission Date: 20111010
  Serious: No
  Sender: FDA-Public Use
  Company Number: US-ASTRAZENECA-2011SE08743

PATIENT
  Age: 78 Year
  Sex: Female

DRUGS (2)
  1. NEXIUM [Suspect]
     Dosage: ONE PER DAY
     Route: 048
  2. NEXIUM [Suspect]
     Dosage: TWICE A DAY
     Route: 048

REACTIONS (4)
  - LARYNGITIS [None]
  - THROAT IRRITATION [None]
  - VOCAL CORD DISORDER [None]
  - COUGH [None]
